FAERS Safety Report 19155218 (Version 2)
Quarter: 2021Q2

REPORT INFORMATION
  Report Type: Spontaneous
  Country: JP (occurrence: JP)
  Receive Date: 20210420
  Receipt Date: 20210420
  Transmission Date: 20210717
  Serious: Yes (Hospitalization, Other)
  Sender: FDA-Public Use
  Company Number: JP-BRISTOL-MYERS SQUIBB COMPANY-BMS-2021-036359

PATIENT
  Age: 44 Year
  Sex: Male

DRUGS (2)
  1. KENACORT?A [Suspect]
     Active Substance: TRIAMCINOLONE ACETONIDE
     Indication: LIGAMENTITIS
     Dosage: 20 MILLIGRAM, TWICE A MONTH
     Route: 058
  2. KENACORT?A [Suspect]
     Active Substance: TRIAMCINOLONE ACETONIDE
     Dosage: 20 MILLIGRAM, 4 TIMES MONTHLY
     Route: 058

REACTIONS (2)
  - Adrenal insufficiency [Unknown]
  - Cushing^s syndrome [Unknown]
